FAERS Safety Report 7872891-3 (Version None)
Quarter: 2011Q4

REPORT INFORMATION
  Report Type: 
  Country: None (occurrence: None)
  Receive Date: 20111030
  Receipt Date: 20110426
  Transmission Date: 20120403
  Serious: No
  Sender: FDA-Public Use
  Company Number: US-AMGEN-USASP2011021716

PATIENT
  Age: 56 Year
  Sex: Female

DRUGS (1)
  1. ENBREL [Suspect]
     Indication: RHEUMATOID ARTHRITIS
     Dosage: 50 MG, QWK
     Dates: start: 20040101

REACTIONS (11)
  - INJECTION SITE ERYTHEMA [None]
  - DYSPEPSIA [None]
  - RESPIRATORY TRACT CONGESTION [None]
  - NASAL CONGESTION [None]
  - CONTUSION [None]
  - INJECTION SITE PRURITUS [None]
  - COUGH [None]
  - HEADACHE [None]
  - NAUSEA [None]
  - SNEEZING [None]
  - ABDOMINAL PAIN UPPER [None]
